FAERS Safety Report 9098464 (Version 1)
Quarter: 2013Q1

REPORT INFORMATION
  Report Type: Spontaneous
  Country: MX (occurrence: MX)
  Receive Date: 20130213
  Receipt Date: 20130213
  Transmission Date: 20140127
  Serious: Yes (Death)
  Sender: FDA-Public Use
  Company Number: PHHY2013MX013839

PATIENT
  Sex: Male

DRUGS (9)
  1. EXJADE [Suspect]
     Indication: IRON OVERLOAD
     Dosage: 250 MG,DAILY
     Route: 048
     Dates: start: 201210
  2. LOSARTAN [Concomitant]
     Indication: HYPERTENSION
     Dosage: UNK UKN, UNK
     Dates: start: 200602, end: 201211
  3. DANAZOL [Concomitant]
     Dosage: 2(UNK),DAILY
     Dates: start: 201209, end: 201211
  4. THALIDOMIDE [Concomitant]
     Dosage: 1(UNK),DAILY
     Dates: start: 201209, end: 201211
  5. SENNOSIDES A+B [Concomitant]
     Dosage: 2(UNK),DAILY
     Dates: start: 201209, end: 201211
  6. PREDNISONE [Concomitant]
     Dosage: 1(UNK),DAILY
     Dates: start: 201209, end: 201211
  7. TIAMINAL B12 TRIVALENTE AP         /00176001/ [Concomitant]
     Dosage: 1(UNK),DAILY
     Route: 030
     Dates: start: 201208, end: 201208
  8. FOLIC ACID [Concomitant]
     Dosage: 3(UNK),DAILY
  9. ERYTHROPOIETIN [Concomitant]
     Dosage: 1(UNK),DAILY
     Dates: start: 201208, end: 201211

REACTIONS (1)
  - Respiratory arrest [Fatal]
